FAERS Safety Report 15656302 (Version 1)
Quarter: 2018Q4

REPORT INFORMATION
  Report Type: Report from Study
  Country: CA (occurrence: CA)
  Receive Date: 20181126
  Receipt Date: 20181126
  Transmission Date: 20190205
  Serious: Yes (Other)
  Sender: FDA-Public Use
  Company Number: CA-JNJFOC-20181103602

PATIENT
  Age: 61 Year
  Sex: Female
  Weight: 49.9 kg

DRUGS (1)
  1. STELARA [Suspect]
     Active Substance: USTEKINUMAB
     Indication: CROHN^S DISEASE
     Dosage: STRENGTH = 90 MG
     Route: 058
     Dates: start: 20180918

REACTIONS (3)
  - Abscess limb [Recovering/Resolving]
  - Induration [Unknown]
  - Gingival graft [Unknown]

NARRATIVE: CASE EVENT DATE: 2018
